FAERS Safety Report 7597109-0 (Version None)
Quarter: 2011Q3

REPORT INFORMATION
  Report Type: 
  Country: None (occurrence: None)
  Receive Date: 20110708
  Receipt Date: 20110630
  Transmission Date: 20111222
  Serious: Yes (Other)
  Sender: FDA-Public Use
  Company Number: JP-JNJFOC-20110602384

PATIENT
  Age: 86 Year
  Sex: Female

DRUGS (8)
  1. FENTANYL-100 [Suspect]
     Route: 062
     Dates: start: 20110625
  2. PRIMPERAN TAB [Concomitant]
     Route: 048
  3. UNKNOWN MEDICATION [Suspect]
     Indication: PRODUCT USED FOR UNKNOWN INDICATION
     Route: 065
  4. FENTANYL-100 [Suspect]
     Indication: CANCER PAIN
     Route: 062
  5. MORPHINE HCL ELIXIR [Concomitant]
     Route: 041
  6. PROCHLORPERAZINE [Concomitant]
     Route: 048
  7. FENTANYL-100 [Suspect]
     Route: 062
  8. FENTANYL-100 [Suspect]
     Route: 062

REACTIONS (9)
  - VOMITING [None]
  - DEMENTIA [None]
  - EUPHORIC MOOD [None]
  - HAEMORRHOIDS [None]
  - INADEQUATE ANALGESIA [None]
  - SOMNOLENCE [None]
  - DELIRIUM [None]
  - SEDATION [None]
  - NAUSEA [None]
